FAERS Safety Report 7023222-2 (Version None)
Quarter: 2010Q3

REPORT INFORMATION
  Report Type: 
  Country: None (occurrence: None)
  Receive Date: 20100930
  Receipt Date: 20100923
  Transmission Date: 20110219
  Serious: Yes (Other)
  Sender: FDA-Public Use
  Company Number: US-PFIZER INC-2010102201

PATIENT
  Sex: Male
  Weight: 76 kg

DRUGS (8)
  1. CHANTIX [Suspect]
     Dosage: 0.5 MG, 1X/DAY
     Route: 048
     Dates: start: 20100801
  2. MS CONTIN [Concomitant]
     Indication: PAIN
     Dosage: 600 MG, 1X/DAY
     Route: 048
  3. VALIUM [Concomitant]
     Indication: ANXIETY
     Dosage: 30 MG, 1X/DAY
     Route: 048
  4. RANEXA [Concomitant]
     Indication: CHEST PAIN
     Dosage: UNK
     Route: 048
  5. HYDRALAZINE [Concomitant]
     Indication: HYPERTENSION
     Dosage: 0.25 MG, UNK
     Route: 048
  6. METOPROLOL [Concomitant]
     Indication: HYPERTENSION
     Dosage: 0.25 MG, UNK
     Route: 048
  7. TAMSULOSIN HYDROCHLORIDE [Concomitant]
     Indication: PROSTATOMEGALY
     Dosage: 0.4 MG, 2X/DAY
     Route: 048
  8. PLAVIX [Concomitant]
     Indication: ANTIPLATELET THERAPY
     Dosage: 75 MG, UNK
     Route: 048

REACTIONS (11)
  - ANGINA PECTORIS [None]
  - BLOOD PRESSURE ABNORMAL [None]
  - CHEST DISCOMFORT [None]
  - COLD SWEAT [None]
  - CONFUSIONAL STATE [None]
  - DYSPNOEA [None]
  - HALLUCINATION [None]
  - NAUSEA [None]
  - PAIN IN EXTREMITY [None]
  - SOMNOLENCE [None]
  - TREMOR [None]
